FAERS Safety Report 21397925 (Version 1)
Quarter: 2022Q3

REPORT INFORMATION
  Report Type: Report from Study
  Country: US (occurrence: US)
  Receive Date: 20220930
  Receipt Date: 20220930
  Transmission Date: 20221027
  Serious: Yes (Hospitalization)
  Sender: FDA-Public Use
  Company Number: US-PFIZER INC-PV202200070480

PATIENT
  Age: 61 Year
  Sex: Female
  Weight: 52.4 kg

DRUGS (6)
  1. INOTUZUMAB OZOGAMICIN [Suspect]
     Active Substance: INOTUZUMAB OZOGAMICIN
     Dosage: 0.6 MG/M2 ON DAY 8, 0.3 MG/M2 ON DAY 15
     Route: 042
     Dates: start: 20220816
  2. INOTUZUMAB OZOGAMICIN [Suspect]
     Active Substance: INOTUZUMAB OZOGAMICIN
     Dosage: 0.6 MG/M2 ON DAY 8, 0.3 MG/M2 ON DAY 15
     Route: 042
  3. DOXORUBICIN HYDROCHLORIDE [Suspect]
     Active Substance: DOXORUBICIN HYDROCHLORIDE
     Indication: B-cell type acute leukaemia
     Dosage: 10 MG/M2/DAY CIV DAYS 1-4 Q28 DAYS
     Route: 042
     Dates: start: 20220910, end: 20220914
  4. VINCRISTINE SULFATE [Suspect]
     Active Substance: VINCRISTINE SULFATE
     Indication: B-cell type acute leukaemia
     Dosage: 0.4 MG/M2/DAY CIV DAYS 1-4 Q28 DAYS
     Route: 042
     Dates: start: 20220910, end: 20220914
  5. ETOPOSIDE [Suspect]
     Active Substance: ETOPOSIDE
     Indication: B-cell type acute leukaemia
     Dosage: 50 MG/M2/DAY CIV DAYS 1-4 Q28 DAYS
     Route: 042
     Dates: start: 20220910, end: 20220914
  6. CYCLOPHOSPHAMIDE [Suspect]
     Active Substance: CYCLOPHOSPHAMIDE
     Indication: B-cell type acute leukaemia
     Dosage: 750 MG/M2 IV DAY 5 Q28 DAYS
     Route: 042
     Dates: start: 20220910, end: 20220914

REACTIONS (1)
  - Enterocolitis infectious [Not Recovered/Not Resolved]

NARRATIVE: CASE EVENT DATE: 20220923
